FAERS Safety Report 12959404 (Version 1)
Quarter: 2016Q4

REPORT INFORMATION
  Report Type: Report from Study
  Country: CA (occurrence: CA)
  Receive Date: 20161121
  Receipt Date: 20161121
  Transmission Date: 20170207
  Serious: Yes (Death, Hospitalization)
  Sender: FDA-Public Use
  Company Number: PHHY2016CA027863

PATIENT
  Sex: Male

DRUGS (2)
  1. ZYKADIA [Suspect]
     Active Substance: CERITINIB
     Indication: NON-SMALL CELL LUNG CANCER
     Dosage: 750 MG, QD
     Route: 048
     Dates: start: 20160223
  2. ZYKADIA [Suspect]
     Active Substance: CERITINIB
     Dosage: 450 MG, QD
     Route: 048

REACTIONS (11)
  - Skin ulcer [Unknown]
  - Dysgeusia [Unknown]
  - Abdominal discomfort [Unknown]
  - Blood sodium decreased [Unknown]
  - Swelling [Unknown]
  - Rash macular [Unknown]
  - Ageusia [Unknown]
  - Fall [Unknown]
  - Abdominal pain upper [Unknown]
  - Death [Fatal]
  - Fatigue [Unknown]
